FAERS Safety Report 9489250 (Version 1)
Quarter: 2013Q3

REPORT INFORMATION
  Report Type: Spontaneous
  Country: US (occurrence: US)
  Receive Date: 20130829
  Receipt Date: 20130829
  Transmission Date: 20140515
  Serious: Yes (Other)
  Sender: FDA-Public Use
  Company Number: US-PFIZER INC-2013247976

PATIENT
  Age: 37 Year
  Sex: Female

DRUGS (3)
  1. SUMATRIPTAN SUCCINATE [Suspect]
     Indication: MIGRAINE
     Dosage: FOUR TABLETS OF 50 MG 3 DAYS PRIOR TO PRESENTATION
     Route: 065
  2. SUMATRIPTAN SUCCINATE [Interacting]
     Dosage: FOUR 50 MG TABLETS 1 DAY PRIOR TO PRESENTATION
     Route: 065
  3. NAPROXEN [Interacting]
     Indication: MIGRAINE
     Dosage: 440MG 1 DAY PRIOR TO PRESENTATION
     Route: 065

REACTIONS (7)
  - Drug interaction [Recovered/Resolved]
  - Colitis ischaemic [Recovered/Resolved]
  - Abdominal pain [Recovered/Resolved]
  - Haematochezia [Recovered/Resolved]
  - Erythema [Recovered/Resolved]
  - Mucosal haemorrhage [Recovered/Resolved]
  - Tenderness [Recovered/Resolved]
